FAERS Safety Report 18147047 (Version 1)
Quarter: 2020Q3

REPORT INFORMATION
  Report Type: Spontaneous
  Country: US (occurrence: US)
  Receive Date: 20200813
  Receipt Date: 20200813
  Transmission Date: 20201103
  Serious: No
  Sender: FDA-Public Use
  Company Number: US-MAYNE PHARMA-2019MYN000649

PATIENT

DRUGS (2)
  1. CLONIDINE. [Suspect]
     Active Substance: CLONIDINE
     Indication: BLOOD PRESSURE MANAGEMENT
     Dosage: 3/10 MG ONCE A WEEK
     Route: 065
     Dates: start: 201906, end: 2019
  2. CLONIDINE. [Suspect]
     Active Substance: CLONIDINE
     Dosage: 0.3 MG, BID
     Route: 065
     Dates: start: 20190705

REACTIONS (6)
  - Alopecia [Unknown]
  - Fatigue [Unknown]
  - Asthenia [Unknown]
  - Hypertension [Recovered/Resolved]
  - Cough [Unknown]
  - Hypotension [Unknown]

NARRATIVE: CASE EVENT DATE: 2019
